FAERS Safety Report 18722679 (Version 1)
Quarter: 2021Q1

REPORT INFORMATION
  Report Type: Spontaneous
  Country: CA (occurrence: CA)
  Receive Date: 20210111
  Receipt Date: 20210111
  Transmission Date: 20210419
  Serious: Yes (Other)
  Sender: FDA-Public Use
  Company Number: CA-ACCORD-213529

PATIENT
  Age: 45 Year
  Sex: Female

DRUGS (3)
  1. METHOTREXATE. [Suspect]
     Active Substance: METHOTREXATE
     Indication: RHEUMATOID ARTHRITIS
  2. ARAVA [Concomitant]
     Active Substance: LEFLUNOMIDE
     Dosage: 1 EVERY 1 DAYS
     Route: 048
  3. HYDROXYCHLOROQUINE [Concomitant]
     Active Substance: HYDROXYCHLOROQUINE
     Dosage: EVERY 1 DAYS
     Route: 048

REACTIONS (7)
  - Dysphonia [Unknown]
  - Treatment noncompliance [Unknown]
  - Cough [Unknown]
  - Rheumatoid arthritis [Unknown]
  - Fear of injection [Unknown]
  - Arthralgia [Unknown]
  - Neck pain [Unknown]
